FAERS Safety Report 4453902-4 (Version None)
Quarter: 2004Q3

REPORT INFORMATION
  Report Type: 
  Country: None (occurrence: None)
  Receive Date: 20040902
  Receipt Date: 20040625
  Transmission Date: 20050211
  Serious: No
  Sender: FDA-Public Use
  Company Number: 200418664BWH

PATIENT
  Sex: Male

DRUGS (6)
  1. LEVITRA [Suspect]
     Indication: ERECTILE DYSFUNCTION
     Dosage: 20 MG, OW, ORAL
     Route: 048
  2. TESTOSTERONE [Concomitant]
  3. ALLERGY SHOTS [Concomitant]
  4. NEXIUM [Concomitant]
  5. L-ARGININE [Concomitant]
  6. VIAGRA [Concomitant]

REACTIONS (1)
  - DRUG INEFFECTIVE [None]
